FAERS Safety Report 8917531 (Version 1)
Quarter: 2012Q4

REPORT INFORMATION
  Report Type: 
  Country: US (occurrence: US)
  Receive Date: 20121120
  Receipt Date: 20121120
  Transmission Date: 20130627
  Serious: No
  Sender: FDA-Public Use
  Company Number: US-VERTEX PHARMACEUTICAL INC.-2012-024648

PATIENT
  Age: 60 Year
  Sex: Female
  Weight: 100 kg

DRUGS (7)
  1. INCIVEK [Suspect]
     Indication: HEPATITIS C
     Dosage: 750 mg, tid
     Route: 048
     Dates: start: 20120914
  2. RIBAVIRIN [Suspect]
     Indication: HEPATITIS C
     Dosage: 1000 mg, qd
     Route: 048
     Dates: start: 20120914
  3. RIBAVIRIN [Suspect]
     Dosage: 800 mg, qd
     Route: 048
  4. PEGINTRON                          /01543001/ [Suspect]
     Indication: HEPATITIS C
     Dosage: 150 ?g, weekly
     Route: 058
     Dates: start: 20120914
  5. LISINOPRIL [Concomitant]
     Indication: HYPERTENSION
     Dosage: 60 mg, qd
     Route: 048
  6. PANTOPRAZOLE [Concomitant]
     Indication: GASTROOESOPHAGEAL REFLUX DISEASE
     Dosage: 40 mg, qd
     Route: 048
  7. FUROSEMIDE [Concomitant]
     Indication: HYPERTENSION
     Dosage: 20 mg, qd
     Route: 048

REACTIONS (3)
  - Drug dose omission [Recovered/Resolved]
  - Fatigue [Not Recovered/Not Resolved]
  - Platelet count decreased [Not Recovered/Not Resolved]
